FAERS Safety Report 4300576-9 (Version None)
Quarter: 2004Q1

REPORT INFORMATION
  Report Type: 
  Country: None (occurrence: None)
  Receive Date: 20040220
  Receipt Date: 20030625
  Transmission Date: 20041129
  Serious: Yes (Other)
  Sender: FDA-Public Use
  Company Number: US-ROCHE-341158

PATIENT
  Age: 4 Month
  Sex: Male
  Weight: 2.4 kg

DRUGS (2)
  1. ACCUTANE [Suspect]
     Dates: start: 20020129, end: 20020502
  2. ORAL CONTRACEPTIVE PILL [Concomitant]
     Indication: CONTRACEPTION
     Dates: end: 20020515

REACTIONS (11)
  - ABDOMINAL PAIN [None]
  - COMPLICATIONS OF MATERNAL EXPOSURE TO THERAPEUTIC DRUGS [None]
  - CONJUNCTIVITIS [None]
  - FUNGAL INFECTION [None]
  - LIVE BIRTH [None]
  - MATERNAL DRUGS AFFECTING FOETUS [None]
  - NEONATAL DISORDER [None]
  - PREGNANCY [None]
  - PREMATURE BABY [None]
  - UMBILICAL HERNIA [None]
  - VAGINITIS [None]
